FAERS Safety Report 9523636 (Version 2)
Quarter: 2013Q3

REPORT INFORMATION
  Report Type: Report from Study
  Country: JP (occurrence: JP)
  Receive Date: 20130913
  Receipt Date: 20130913
  Transmission Date: 20140515
  Serious: Yes (Hospitalization)
  Sender: FDA-Public Use
  Company Number: JP-009507513-2009SP006844

PATIENT
  Age: 58 Year
  Sex: Female
  Weight: 59.1 kg

DRUGS (8)
  1. REBETOL [Suspect]
     Indication: CHRONIC HEPATITIS C
     Dosage: 800 MG, QD
     Route: 048
     Dates: start: 20090218
  2. REBETOL [Suspect]
     Dosage: 600 MG, QD
     Route: 048
     Dates: start: 20090304
  3. REBETOL [Suspect]
     Dosage: 400 MG, QD
     Route: 048
     Dates: start: 20090307
  4. REBETOL [Suspect]
     Dosage: 200 MG, QD
     Route: 048
     Dates: start: 20090318, end: 20090405
  5. REBETOL [Suspect]
     Dosage: 200-600 MG/DOSE; DAILY DOSE, 600-1000 MG AFTER MEALS B.I.D.
     Route: 048
  6. PEGINTRON [Suspect]
     Indication: CHRONIC HEPATITIS C
     Dosage: 100 ?G, QW
     Route: 058
     Dates: start: 20090218, end: 20090401
  7. PEGINTRON [Suspect]
     Dosage: 1.5 UG/KG; RANGE, 1250-1739 UG/KG ONCE A WEEK
     Route: 058
  8. TELAPREVIR [Suspect]
     Indication: CHRONIC HEPATITIS C
     Dosage: 750 MG, Q8H
     Route: 048
     Dates: start: 20090218, end: 20090405

REACTIONS (1)
  - Erythema multiforme [Recovered/Resolved]
